FAERS Safety Report 8429208-5 (Version None)
Quarter: 2012Q2

REPORT INFORMATION
  Report Type: 
  Country: None (occurrence: None)
  Receive Date: 20120612
  Receipt Date: 20120605
  Transmission Date: 20120825
  Serious: Yes (Disabling)
  Sender: FDA-Public Use
  Company Number: PHHY2012CR048520

PATIENT
  Age: 66 Year
  Sex: Female

DRUGS (6)
  1. FLUOXETINE [Concomitant]
     Dosage: 40 MG,DAILY
  2. EXELON [Suspect]
     Indication: COGNITIVE DISORDER
     Dosage: 4.6 MG, DAILY
     Route: 062
  3. BIPERIDEN HYDROCHLORIDE TAB [Concomitant]
     Dosage: 1 MG, DAILY
  4. IRBESARTAN [Concomitant]
     Dosage: 300 MG, DAILY
  5. HYDROXYZINE [Concomitant]
     Dosage: 25 MG, DAILY
  6. ATENOLOL [Concomitant]
     Dosage: 100 MG, DAILY

REACTIONS (2)
  - BALANCE DISORDER [None]
  - SOMNOLENCE [None]
